FAERS Safety Report 18006706 (Version 1)
Quarter: 2020Q3

REPORT INFORMATION
  Report Type: Spontaneous
  Country: BG (occurrence: BG)
  Receive Date: 20200710
  Receipt Date: 20200710
  Transmission Date: 20201103
  Serious: Yes (Other)
  Sender: FDA-Public Use
  Company Number: BG-PFIZER INC-2020262610

PATIENT
  Age: 22 Year

DRUGS (4)
  1. XELJANZ [Suspect]
     Active Substance: TOFACITINIB CITRATE
     Dosage: 2X10?8 WEEKS
     Route: 048
     Dates: start: 201912, end: 202006
  2. SALOFALK [MESALAZINE] [Concomitant]
     Active Substance: MESALAMINE
  3. HUMIRA [Concomitant]
     Active Substance: ADALIMUMAB
  4. REMSIMA [Concomitant]
     Active Substance: INFLIXIMAB

REACTIONS (3)
  - Frequent bowel movements [Unknown]
  - Haematochezia [Unknown]
  - Condition aggravated [Recovering/Resolving]
